FAERS Safety Report 5339346-1 (Version None)
Quarter: 2007Q2

REPORT INFORMATION
  Report Type: 
  Country: None (occurrence: None)
  Receive Date: 20070525
  Receipt Date: 20070515
  Transmission Date: 20071010
  Serious: Yes (Other)
  Sender: FDA-Public Use
  Company Number: 2007US001104

PATIENT
  Age: 37 Year
  Sex: Male

DRUGS (7)
  1. AMBISOME [Suspect]
     Indication: FUNGAL INFECTION
     Dosage: 7 MG/KG, UID/QD
  2. FLUCONAZOLE [Concomitant]
  3. AMPICILLIN [Concomitant]
  4. GENTAMICIN [Concomitant]
  5. METRONIDAZOLE [Concomitant]
  6. OMEPRAZOLE [Concomitant]
  7. G-CSF (GRANULOCYTE COLONY STIMULATING FACTOR) [Concomitant]

REACTIONS (6)
  - HAEMORRHAGIC DIATHESIS [None]
  - HYPOKALAEMIA [None]
  - OLIGURIA [None]
  - RESPIRATORY DISORDER [None]
  - SKIN NECROSIS [None]
  - THROMBOCYTOPENIA [None]
